FAERS Safety Report 24953962 (Version 1)
Quarter: 2025Q1

REPORT INFORMATION
  Report Type: Spontaneous
  Country: IN (occurrence: IN)
  Receive Date: 20250211
  Receipt Date: 20250211
  Transmission Date: 20250408
  Serious: No
  Sender: ALKEM
  Company Number: IN-ALKEM LABORATORIES LIMITED-IN-ALKEM-2024-22644

PATIENT
  Age: 20 Year
  Sex: Female

DRUGS (1)
  1. TRIAMCINOLONE ACETONIDE [Suspect]
     Active Substance: TRIAMCINOLONE ACETONIDE
     Indication: Keloid scar
     Route: 026

REACTIONS (2)
  - Administration site discolouration [Unknown]
  - Atrophy [Unknown]
